FAERS Safety Report 9824906 (Version 1)
Quarter: 2014Q1

REPORT INFORMATION
  Report Type: Spontaneous
  Country: GB (occurrence: GB)
  Receive Date: 20140117
  Receipt Date: 20140117
  Transmission Date: 20141002
  Serious: Yes (Other)
  Sender: FDA-Public Use
  Company Number: GB-BRISTOL-MYERS SQUIBB COMPANY-19978238

PATIENT
  Age: 77 Year
  Sex: Male
  Weight: 90 kg

DRUGS (9)
  1. ARIPIPRAZOLE [Suspect]
     Indication: DELUSIONAL DISORDER, UNSPECIFIED TYPE
     Route: 048
     Dates: start: 2007, end: 20131117
  2. BECLOMETHASONE [Concomitant]
     Indication: ASTHMA
     Dosage: INHALATION USE
  3. CALCICHEW [Concomitant]
     Indication: HYPOCALCAEMIA
     Route: 048
  4. CLONAZEPAM [Concomitant]
     Indication: MYOCLONUS
     Route: 048
  5. FLUOXETINE [Concomitant]
     Indication: DEPRESSION
     Route: 048
  6. FUROSEMIDE [Concomitant]
     Indication: HYPERTENSION
     Route: 048
  7. NIFEDIPINE [Concomitant]
     Indication: HYPERTENSION
     Route: 048
  8. SALMETEROL [Concomitant]
     Indication: ASTHMA
     Dosage: INHALATION USE
  9. SIMVASTATIN [Concomitant]
     Indication: HYPERCHOLESTEROLAEMIA
     Route: 048

REACTIONS (2)
  - Hypomania [Recovered/Resolved]
  - Off label use [Unknown]
